FAERS Safety Report 9903635 (Version 1)
Quarter: 2014Q1

REPORT INFORMATION
  Report Type: Spontaneous
  Country: FR (occurrence: FR)
  Receive Date: 20140217
  Receipt Date: 20140217
  Transmission Date: 20141002
  Serious: Yes (Hospitalization, Other)
  Sender: FDA-Public Use
  Company Number: FR-ABBVIE-14P-056-1203073-00

PATIENT
  Age: 80 Year
  Sex: Female

DRUGS (6)
  1. ZECLAR [Suspect]
     Indication: LUNG INFECTION
     Route: 048
     Dates: start: 20140111, end: 20140115
  2. MINISINTROM [Suspect]
     Indication: ATRIAL FIBRILLATION
     Route: 048
     Dates: start: 201306, end: 20140118
  3. MINISINTROM [Suspect]
     Indication: ANTICOAGULANT THERAPY
  4. ALDACTONE [Concomitant]
     Indication: HYPERTENSION
     Route: 048
  5. LASILIX [Concomitant]
     Indication: HYPERTENSION
     Route: 048
  6. ELISOR [Concomitant]
     Indication: PRODUCT USED FOR UNKNOWN INDICATION
     Route: 048

REACTIONS (5)
  - Muscle haemorrhage [Recovering/Resolving]
  - Anaemia [Recovering/Resolving]
  - Overdose [Unknown]
  - Renal failure acute [Unknown]
  - Haemorrhage [Unknown]
